FAERS Safety Report 9796623 (Version 4)
Quarter: 2014Q1

REPORT INFORMATION
  Report Type: Report from Study
  Country: CA (occurrence: CA)
  Receive Date: 20140103
  Receipt Date: 20140124
  Transmission Date: 20141002
  Serious: Yes (Hospitalization)
  Sender: FDA-Public Use
  Company Number: CA-ABBVIE-13P-028-1179378-00

PATIENT
  Sex: Female
  Weight: 52.21 kg

DRUGS (3)
  1. HUMIRA [Suspect]
     Indication: CROHN^S DISEASE
     Route: 058
     Dates: start: 20130626, end: 201311
  2. HUMIRA [Suspect]
     Route: 058
     Dates: start: 201311
  3. IMURAN [Concomitant]
     Indication: CROHN^S DISEASE
     Route: 058
     Dates: start: 2009

REACTIONS (9)
  - Cyst [Not Recovered/Not Resolved]
  - Rectal abscess [Not Recovered/Not Resolved]
  - Anal fistula [Not Recovered/Not Resolved]
  - Pain [Not Recovered/Not Resolved]
  - Mobility decreased [Not Recovered/Not Resolved]
  - Abscess drainage [Not Recovered/Not Resolved]
  - Fall [Unknown]
  - Contusion [Unknown]
  - Localised infection [Unknown]
